FAERS Safety Report 23472487 (Version 3)
Quarter: 2024Q1

REPORT INFORMATION
  Report Type: Spontaneous
  Country: PT (occurrence: PT)
  Receive Date: 20240202
  Receipt Date: 20240322
  Transmission Date: 20240410
  Serious: Yes (Death, Hospitalization, Other)
  Sender: FDA-Public Use
  Company Number: PT-VERTEX PHARMACEUTICALS-2024-001547

PATIENT
  Age: 12 Year
  Sex: Female

DRUGS (6)
  1. ELEXACAFTOR\IVACAFTOR\TEZACAFTOR [Suspect]
     Active Substance: ELEXACAFTOR\IVACAFTOR\TEZACAFTOR
     Indication: Cystic fibrosis
     Dosage: 2 TABLETS (75 MG IVACAFTOR, 50 MG TEZACAFTOR AND 100 MG ELEXACAFTOR) PER DAY
     Route: 048
     Dates: start: 20230703, end: 20231227
  2. KALYDECO [Suspect]
     Active Substance: IVACAFTOR
     Indication: Cystic fibrosis
     Dosage: 150 MILLIGRAM, QD
     Route: 048
     Dates: start: 20230703, end: 20231227
  3. AMOXICILLIN\CLAVULANATE POTASSIUM [Concomitant]
     Active Substance: AMOXICILLIN\CLAVULANATE POTASSIUM
     Dosage: UNK
     Dates: start: 20240114
  4. VANCOMYCIN [Concomitant]
     Active Substance: VANCOMYCIN
     Dosage: 480 MILLIGRAM
  5. VANCOMYCIN [Concomitant]
     Active Substance: VANCOMYCIN
     Dosage: GRADUALLY ADJUSTED TO 900 MILLIGRAM, 6/6H
     Dates: start: 20240123
  6. PIPERACILLIN AND TAZOBACTAM [Concomitant]
     Active Substance: PIPERACILLIN SODIUM\TAZOBACTAM SODIUM
     Dosage: 2G 6/6H
     Dates: start: 20240124

REACTIONS (10)
  - Drug-induced liver injury [Fatal]
  - Shock haemorrhagic [Fatal]
  - Coagulopathy [Fatal]
  - Encephalopathy [Unknown]
  - Intracranial pressure increased [Unknown]
  - Anaemia [Unknown]
  - Metabolic acidosis [Unknown]
  - Staphylococcus test positive [Unknown]
  - Infective pulmonary exacerbation of cystic fibrosis [Unknown]
  - Haemophilus infection [Unknown]

NARRATIVE: CASE EVENT DATE: 20230826
